FAERS Safety Report 8111656-4 (Version None)
Quarter: 2012Q1

REPORT INFORMATION
  Report Type: 
  Country: None (occurrence: None)
  Receive Date: 20120202
  Receipt Date: 20120202
  Transmission Date: 20120608
  Serious: No
  Sender: FDA-Public Use
  Company Number: None

PATIENT
  Sex: Female

DRUGS (1)
  1. ZELBORAF [Suspect]
     Dosage: 240MG MG PO
     Route: 048

REACTIONS (5)
  - DYSGEUSIA [None]
  - RASH [None]
  - MUSCULOSKELETAL STIFFNESS [None]
  - NAUSEA [None]
  - BURNING SENSATION [None]
